FAERS Safety Report 5760243-1 (Version None)
Quarter: 2008Q2

REPORT INFORMATION
  Report Type: 
  Country: None (occurrence: None)
  Receive Date: 20080602
  Receipt Date: 20080526
  Transmission Date: 20081010
  Serious: Yes (Other)
  Sender: FDA-Public Use
  Company Number: CHPA2008US08781

PATIENT
  Age: 60 Year
  Sex: Female

DRUGS (1)
  1. GAS-X EXTRA STRENGTH SOFTGELS (NCH) (SMETHICONE) SOFT GELATIN CAPSULE [Suspect]
     Dosage: ORAL
     Route: 048

REACTIONS (1)
  - BLOOD PRESSURE DECREASED [None]
